FAERS Safety Report 10253469 (Version 2)
Quarter: 2014Q4

REPORT INFORMATION
  Report Type: Spontaneous
  Country: US (occurrence: US)
  Receive Date: 20140623
  Receipt Date: 20141028
  Transmission Date: 20150528
  Serious: No
  Sender: FDA-Public Use
  Company Number: US-009507513-1406USA010936

PATIENT
  Sex: Female
  Weight: 65.76 kg

DRUGS (4)
  1. ALPHAGAN P [Concomitant]
     Active Substance: BRIMONIDINE TARTRATE
     Indication: GLAUCOMA
     Dosage: UNK, UNKNOWN
  2. OXYTROL FOR WOMEN [Suspect]
     Active Substance: OXYBUTYNIN
     Indication: HYPERTONIC BLADDER
     Dosage: UNK, UNKNOWN
     Route: 062
  3. COSOPT [Concomitant]
     Active Substance: DORZOLAMIDE HYDROCHLORIDE\TIMOLOL MALEATE
     Indication: GLAUCOMA
     Dosage: UNK, UNKNOWN
  4. LUMIGAN [Concomitant]
     Active Substance: BIMATOPROST
     Indication: GLAUCOMA
     Dosage: UNK, UNKNOWN

REACTIONS (5)
  - Erythema [Recovering/Resolving]
  - Product use issue [Unknown]
  - Skin warm [Recovering/Resolving]
  - Application site pain [Recovering/Resolving]
  - Application site pruritus [Recovering/Resolving]
